FAERS Safety Report 18513984 (Version 3)
Quarter: 2020Q4

REPORT INFORMATION
  Report Type: Report from Study
  Country: US (occurrence: US)
  Receive Date: 20201117
  Receipt Date: 20201211
  Transmission Date: 20210114
  Serious: Yes (Hospitalization, Other)
  Sender: FDA-Public Use
  Company Number: US-SEATTLE GENETICS-2020SGN05094

PATIENT
  Sex: Female

DRUGS (1)
  1. TUCATINIB [Suspect]
     Active Substance: TUCATINIB
     Indication: BREAST CANCER FEMALE

REACTIONS (10)
  - Pneumonia [Unknown]
  - Adverse drug reaction [Unknown]
  - Illness [Unknown]
  - Fall [Unknown]
  - Abdominal pain upper [Unknown]
  - Diarrhoea [Unknown]
  - Hospice care [Unknown]
  - Dehydration [Unknown]
  - Hypertension [Unknown]
  - Asthenia [Unknown]
